FAERS Safety Report 19369709 (Version 7)
Quarter: 2023Q2

REPORT INFORMATION
  Report Type: Spontaneous
  Country: US (occurrence: US)
  Receive Date: 20210603
  Receipt Date: 20230414
  Transmission Date: 20230721
  Serious: No
  Sender: FDA-Public Use
  Company Number: US-PFIZER INC-2021267963

PATIENT
  Age: 87 Year
  Sex: Male
  Weight: 81.633 kg

DRUGS (8)
  1. VYNDAMAX [Suspect]
     Active Substance: TAFAMIDIS
     Indication: Cardiac amyloidosis
     Dosage: 61 MG (STARTED 5 YEARS AGO)
     Dates: start: 201901, end: 20230129
  2. VYNDAMAX [Suspect]
     Active Substance: TAFAMIDIS
     Dosage: 61 MG
  3. ELIQUIS [Suspect]
     Active Substance: APIXABAN
     Indication: Cerebrovascular accident prophylaxis
     Dosage: 5 MG (STARTED 5 YEARS AGO)
  4. LIPITOR [Concomitant]
     Active Substance: ATORVASTATIN CALCIUM
     Indication: Blood cholesterol abnormal
     Dosage: 20 MG (STARTED 40 YEARS AGO)
  5. CITALOPRAM [Concomitant]
     Active Substance: CITALOPRAM HYDROBROMIDE
     Indication: Depression
     Dosage: 20 MG (STARTED 40 YEARS AGO)
  6. OMEPRAZOLE [Concomitant]
     Active Substance: OMEPRAZOLE
     Indication: Hyperchlorhydria
     Dosage: 40 MG (STARTED 5 YEARS AGO)
     Dates: start: 2018
  7. FUROSEMIDE [Concomitant]
     Active Substance: FUROSEMIDE
     Indication: Fluid retention
     Dosage: 40 MG (STARTED 5 YEARS AGO)
     Dates: start: 2018
  8. POTASSIUM CHLORIDE [Concomitant]
     Active Substance: POTASSIUM CHLORIDE
     Dosage: 10 MG (STARTED 5 YEARS AGO)
     Dates: start: 2018

REACTIONS (5)
  - Fatigue [Unknown]
  - Depression [Unknown]
  - Insomnia [Unknown]
  - Weight increased [Unknown]
  - Confusional state [Unknown]
